FAERS Safety Report 8607045 (Version 2)
Quarter: 2013Q3

REPORT INFORMATION
  Report Type: Spontaneous
  Country: US (occurrence: US)
  Receive Date: 20120611
  Receipt Date: 20130723
  Transmission Date: 20140515
  Serious: Yes (Hospitalization)
  Sender: FDA-Public Use
  Company Number: US-ASTRAZENECA-2012SE35483

PATIENT
  Sex: Female

DRUGS (6)
  1. NEXIUM [Suspect]
     Indication: DIARRHOEA
     Dosage: ONE TO TWO TAB PER DAY
     Route: 048
     Dates: start: 2012, end: 2013
  2. NEXIUM [Suspect]
     Indication: GASTRIC DISORDER
     Dosage: ONE TO TWO TAB PER DAY
     Route: 048
     Dates: start: 2012, end: 2013
  3. PRILOSEC OTC [Suspect]
     Dosage: ONE PER DAY
     Route: 048
  4. MILK OF MAGNESIA [Concomitant]
     Dates: start: 2012
  5. PEMACA [Concomitant]
  6. BENEDRYL [Concomitant]

REACTIONS (8)
  - Road traffic accident [Unknown]
  - Osteoporosis [Unknown]
  - Multiple fractures [Unknown]
  - Abdominal pain upper [Unknown]
  - Arthritis [Unknown]
  - Calcium deficiency [Unknown]
  - Diarrhoea [Unknown]
  - Depression [Unknown]
